FAERS Safety Report 6511183-1 (Version None)
Quarter: 2009Q4

REPORT INFORMATION
  Report Type: 
  Country: None (occurrence: None)
  Receive Date: 20091222
  Receipt Date: 20091216
  Transmission Date: 20100525
  Serious: Yes (Hospitalization, Other)
  Sender: FDA-Public Use
  Company Number: AR-ROXANE LABORATORIES, INC.-2009-RO-01269RO

PATIENT
  Age: 76 Year
  Sex: Male

DRUGS (12)
  1. TOPIRAMATE [Suspect]
     Indication: TRIGEMINAL NEURALGIA
  2. ENALAPRIL MALEATE [Suspect]
     Indication: HYPERTENSION
  3. GLIBENCLAMIDE [Suspect]
     Indication: TYPE 2 DIABETES MELLITUS
  4. CARBAMAZEPINE [Suspect]
     Indication: TRIGEMINAL NEURALGIA
  5. AMPICILIN-SULBACTAM [Suspect]
     Indication: EVIDENCE BASED TREATMENT
  6. CIPROFLOXACIN [Suspect]
     Indication: EVIDENCE BASED TREATMENT
  7. TAZONAM [Suspect]
     Indication: EVIDENCE BASED TREATMENT
  8. IMIPENEM [Suspect]
     Indication: EVIDENCE BASED TREATMENT
  9. INSULIN [Suspect]
     Indication: HYPERGLYCAEMIA
  10. INSULIN [Suspect]
     Indication: BLOOD KETONE BODY
  11. BICARBONATE [Concomitant]
     Indication: ACIDOSIS HYPERCHLORAEMIC
     Route: 042
  12. ALBUMIN (HUMAN) [Concomitant]
     Indication: ACIDOSIS HYPERCHLORAEMIC

REACTIONS (8)
  - BLOOD KETONE BODY [None]
  - HEPATIC STEATOSIS [None]
  - HYPERGLYCAEMIA [None]
  - HYPONATRAEMIA [None]
  - LEUKOCYTOSIS [None]
  - PNEUMONIA KLEBSIELLA [None]
  - PROSTATIC SPECIFIC ANTIGEN INCREASED [None]
  - RENAL TUBULAR ACIDOSIS [None]
